FAERS Safety Report 25345688 (Version 1)
Quarter: 2025Q2

REPORT INFORMATION
  Report Type: Spontaneous
  Country: GB (occurrence: GB)
  Receive Date: 20250522
  Receipt Date: 20250522
  Transmission Date: 20250717
  Serious: Yes (Other)
  Sender: ORGANON
  Company Number: None

PATIENT
  Age: 47 Year
  Sex: Male

DRUGS (1)
  1. FINASTERIDE [Suspect]
     Active Substance: FINASTERIDE
     Indication: Alopecia
     Dosage: 1MG DAILY
     Dates: start: 20230726, end: 20240719

REACTIONS (1)
  - Breast mass [Recovered/Resolved]

NARRATIVE: CASE EVENT DATE: 20240719
